FAERS Safety Report 15139726 (Version 1)
Quarter: 2018Q3

REPORT INFORMATION
  Report Type: Spontaneous
  Country: US (occurrence: US)
  Receive Date: 20180618
  Receipt Date: 20180618
  Transmission Date: 20181010
  Serious: No
  Sender: FDA-Public Use
  Company Number: None

PATIENT
  Age: 51 Year
  Sex: Female
  Weight: 58.5 kg

DRUGS (1)
  1. FLUTICASONE PROPIONATE NASAL SPRAY USP [Suspect]
     Active Substance: FLUTICASONE PROPIONATE
     Indication: SINUSITIS
     Dosage: ?          QUANTITY:1 SPRAY(S);?
     Route: 045

REACTIONS (6)
  - Scab [None]
  - Epistaxis [None]
  - Scar [None]
  - Rhinorrhoea [None]
  - Skin burning sensation [None]
  - Nasal discomfort [None]

NARRATIVE: CASE EVENT DATE: 20171228
